FAERS Safety Report 10672421 (Version 3)
Quarter: 2015Q1

REPORT INFORMATION
  Report Type: Spontaneous
  Country: FR (occurrence: FR)
  Receive Date: 20141223
  Receipt Date: 20150205
  Transmission Date: 20150720
  Serious: Yes (Other)
  Sender: FDA-Public Use
  Company Number: FR-ASTRAZENECA-2014SE97994

PATIENT
  Age: 19372 Day
  Sex: Female

DRUGS (12)
  1. ZELITREX [Suspect]
     Active Substance: VALACYCLOVIR HYDROCHLORIDE
     Route: 048
     Dates: end: 20141111
  2. BICARBONATE [Concomitant]
     Active Substance: BICARBONATE ION
     Dosage: MOUTHWASHES WITH BICARBONATE
  3. INEXIUM [Suspect]
     Active Substance: ESOMEPRAZOLE
     Route: 048
     Dates: end: 20141111
  4. PENTACARINAT [Suspect]
     Active Substance: PENTAMIDINE ISETHIONATE
     Route: 055
     Dates: end: 20141105
  5. ZYLORIC [Suspect]
     Active Substance: ALLOPURINOL
     Route: 048
     Dates: end: 20141106
  6. AMLOR [Suspect]
     Active Substance: AMLODIPINE BESYLATE
     Route: 048
     Dates: end: 20141111
  7. TOPALGIC [Suspect]
     Active Substance: TRAMADOL
     Dosage: STRENGHT: 100 MG/2 ML, 200 MG EVERY DAY
     Route: 042
     Dates: start: 20141105, end: 20141106
  8. FUNGIZONE [Suspect]
     Active Substance: AMPHOTERICIN B
     Route: 002
  9. NOXAFIL [Suspect]
     Active Substance: POSACONAZOLE
     Route: 048
     Dates: end: 20141111
  10. LEXOMIL [Suspect]
     Active Substance: BROMAZEPAM
     Route: 048
     Dates: end: 20141106
  11. PRIMPERAN [Suspect]
     Active Substance: METOCLOPRAMIDE HYDROCHLORIDE
     Dosage: STRENGHT: 10 MG/2 ML, 30 MG EVERY DAY
     Route: 042
     Dates: start: 20141105, end: 20141106
  12. IMOVANE [Concomitant]
     Active Substance: ZOPICLONE

REACTIONS (1)
  - Toxic skin eruption [Recovering/Resolving]

NARRATIVE: CASE EVENT DATE: 20141106
